FAERS Safety Report 4515939-6 (Version None)
Quarter: 2004Q4

REPORT INFORMATION
  Report Type: 
  Country: None (occurrence: None)
  Receive Date: 20041129
  Receipt Date: 20041120
  Transmission Date: 20050328
  Serious: Yes (Death, Hospitalization)
  Sender: FDA-Public Use
  Company Number: 2004095986

PATIENT
  Age: 39 Year
  Sex: Female

DRUGS (2)
  1. CELEBREX [Suspect]
     Indication: RHEUMATOID ARTHRITIS
     Dosage: 400 MG (200 MG, 2 IN 1 D), ORAL
     Route: 048
     Dates: start: 20040912, end: 20041101
  2. METHYLPREDNISOLONE [Concomitant]

REACTIONS (1)
  - GASTRIC HAEMORRHAGE [None]
